FAERS Safety Report 4527343-5 (Version None)
Quarter: 2004Q4

REPORT INFORMATION
  Report Type: 
  Country: None (occurrence: None)
  Receive Date: 20041214
  Receipt Date: 20041214
  Transmission Date: 20050328
  Serious: Yes (Hospitalization)
  Sender: FDA-Public Use
  Company Number: None

PATIENT
  Age: 54 Year
  Sex: Female
  Weight: 54.4316 kg

DRUGS (2)
  1. BEXTRA [Suspect]
     Dosage: 1 TABLET DAILY  ORAL
     Route: 048
     Dates: start: 20030918, end: 20040819
  2. FOSAMAX [Concomitant]

REACTIONS (2)
  - CARDIOVASCULAR DISORDER [None]
  - EMBOLIC STROKE [None]
